FAERS Safety Report 21795042 (Version 1)
Quarter: 2022Q4

REPORT INFORMATION
  Report Type: Report from Study
  Country: NO (occurrence: NO)
  Receive Date: 20221229
  Receipt Date: 20221229
  Transmission Date: 20230113
  Serious: Yes (Hospitalization)
  Sender: FDA-Public Use
  Company Number: NO-TEVA-2022-NO-2839775

PATIENT
  Age: 62 Year
  Sex: Male

DRUGS (4)
  1. FLUOROURACIL [Suspect]
     Active Substance: FLUOROURACIL
     Indication: Colorectal cancer metastatic
     Dosage: 800MG Q2W
     Route: 042
     Dates: start: 20221206
  2. FLUOROURACIL [Suspect]
     Active Substance: FLUOROURACIL
     Dosage: 4776MG 2 DAY INFUSOR/Q2W
     Route: 042
     Dates: start: 20221206
  3. LEUCOVORIN [Suspect]
     Active Substance: LEUCOVORIN
     Indication: Colorectal cancer metastatic
     Dosage: 796MG EVERY 2 WEEKS
     Route: 042
     Dates: start: 20221206
  4. OXALIPLATIN [Suspect]
     Active Substance: OXALIPLATIN
     Indication: Colorectal cancer metastatic
     Dosage: 170 MG, Q2W
     Route: 042
     Dates: start: 20221206

REACTIONS (1)
  - Enterocolitis [Not Recovered/Not Resolved]

NARRATIVE: CASE EVENT DATE: 20221211
